FAERS Safety Report 23796967 (Version 1)
Quarter: 2024Q2

REPORT INFORMATION
  Report Type: Spontaneous
  Country: RS (occurrence: RS)
  Receive Date: 20240430
  Receipt Date: 20240430
  Transmission Date: 20240715
  Serious: Yes (Other)
  Sender: FDA-Public Use
  Company Number: RS-BRISTOL-MYERS SQUIBB COMPANY-2024-064611

PATIENT
  Age: 68 Year

DRUGS (1)
  1. OPDIVO [Suspect]
     Active Substance: NIVOLUMAB
     Indication: Malignant melanoma
     Dates: start: 202205

REACTIONS (4)
  - Lymphadenopathy [Unknown]
  - Lung disorder [Unknown]
  - Bone lesion [Unknown]
  - Osteolysis [Unknown]

NARRATIVE: CASE EVENT DATE: 20220801
